FAERS Safety Report 17695811 (Version 1)
Quarter: 2020Q2

REPORT INFORMATION
  Report Type: Report from Study
  Country: CN (occurrence: CN)
  Receive Date: 20200422
  Receipt Date: 20200422
  Transmission Date: 20200714
  Serious: Yes (Other)
  Sender: FDA-Public Use
  Company Number: CN-ROCHE-2586127

PATIENT

DRUGS (2)
  1. PACLITAXEL. [Suspect]
     Active Substance: PACLITAXEL
     Indication: LUNG ADENOCARCINOMA
     Route: 041
  2. BEVACIZUMAB. [Suspect]
     Active Substance: BEVACIZUMAB
     Indication: LUNG ADENOCARCINOMA
     Route: 065

REACTIONS (11)
  - Albuminuria [Unknown]
  - Haemorrhage [Unknown]
  - Transaminases increased [Unknown]
  - Granulocytopenia [Unknown]
  - Haemoptysis [Unknown]
  - Nausea [Unknown]
  - Alopecia [Unknown]
  - Myalgia [Unknown]
  - Vomiting [Unknown]
  - Hypertension [Unknown]
  - Thrombocytopenia [Unknown]
